FAERS Safety Report 20247415 (Version 1)
Quarter: 2021Q4

REPORT INFORMATION
  Report Type: Spontaneous
  Country: US (occurrence: None)
  Receive Date: 20211228
  Receipt Date: 20211228
  Transmission Date: 20220303
  Serious: Yes (Other)
  Sender: FDA-Public Use
  Company Number: None

PATIENT
  Age: 77 Year
  Sex: Female
  Weight: 95 kg

DRUGS (1)
  1. HIZENTRA [Suspect]
     Active Substance: HUMAN IMMUNOGLOBULIN G
     Indication: Inclusion body myositis
     Dosage: FREQUENCY : WEEKLY;?
     Route: 058

REACTIONS (5)
  - Infusion related reaction [None]
  - Pain [None]
  - Injection site urticaria [None]
  - Abdominal tenderness [None]
  - Recalled product [None]

NARRATIVE: CASE EVENT DATE: 20211111
